FAERS Safety Report 20364002 (Version 1)
Quarter: 2022Q1

REPORT INFORMATION
  Report Type: Spontaneous
  Country: US (occurrence: None)
  Receive Date: 20220121
  Receipt Date: 20220121
  Transmission Date: 20220423
  Serious: Yes (Other)
  Sender: FDA-Public Use
  Company Number: None

PATIENT
  Age: 59 Year
  Sex: Male
  Weight: 76.5 kg

DRUGS (9)
  1. EVUSHELD [Suspect]
     Active Substance: CILGAVIMAB\TIXAGEVIMAB
     Indication: COVID-19 prophylaxis
     Dosage: OTHER FREQUENCY : ONCE;?
     Route: 030
     Dates: start: 20220118, end: 20220118
  2. Acetaminophen 650mg [Concomitant]
     Dates: start: 20211223
  3. Acyclovir 800mg BID [Concomitant]
     Dates: start: 20211222
  4. Bactrim DS Mon/Thurs [Concomitant]
     Dates: start: 20211230
  5. Claritan 10mg PRN [Concomitant]
     Dates: start: 20211004
  6. Compazine 10mg PRN [Concomitant]
     Dates: start: 20210913
  7. Melatonin 3mg [Concomitant]
     Dates: start: 20210913
  8. OMEPRAZOLE [Concomitant]
     Active Substance: OMEPRAZOLE
     Dates: start: 20211004
  9. Ondansetron 4mg PRN [Concomitant]
     Dates: start: 20210913

REACTIONS (3)
  - Pruritus [None]
  - Pruritus [None]
  - Skin reaction [None]

NARRATIVE: CASE EVENT DATE: 20220119
